FAERS Safety Report 9688188 (Version 2)
Quarter: 2013Q4

REPORT INFORMATION
  Report Type: Report from Study
  Country: GB (occurrence: GB)
  Receive Date: 20131114
  Receipt Date: 20131127
  Transmission Date: 20140711
  Serious: Yes (Death, Hospitalization)
  Sender: FDA-Public Use
  Company Number: GB-BRISTOL-MYERS SQUIBB COMPANY-19789007

PATIENT
  Age: 57 Year
  Sex: Male

DRUGS (11)
  1. IPILIMUMAB [Suspect]
     Indication: METASTATIC MALIGNANT MELANOMA
     Route: 042
     Dates: start: 20131021
  2. ZOMORPH [Concomitant]
     Dates: start: 20130827
  3. PARACETAMOL [Concomitant]
     Dates: start: 20130807
  4. NAPROXEN [Concomitant]
     Dates: start: 20130807
  5. OMEPRAZOLE [Concomitant]
     Dates: start: 20130830
  6. METOCLOPRAMIDE [Concomitant]
     Dates: start: 20130819
  7. ORAMORPH [Concomitant]
     Dosage: 1 DF : 10-20MG
     Dates: start: 20130807
  8. HYOSCINE [Concomitant]
     Route: 058
  9. LEVOMEPROMAZINE [Concomitant]
     Route: 058
  10. BETAMETHASONE [Concomitant]
     Dates: start: 20131024
  11. DOSULEPIN [Concomitant]
     Dates: start: 20131024

REACTIONS (5)
  - Malignant neoplasm progression [Fatal]
  - Renal failure acute [Fatal]
  - Confusional state [Fatal]
  - Vomiting [Fatal]
  - Abdominal pain [Unknown]
